FAERS Safety Report 24084634 (Version 1)
Quarter: 2024Q3

REPORT INFORMATION
  Report Type: Spontaneous
  Country: US (occurrence: None)
  Receive Date: 20240711
  Receipt Date: 20240711
  Transmission Date: 20241017
  Serious: No
  Sender: Public
  Company Number: None

PATIENT
  Age: 48 Year
  Sex: Female

DRUGS (5)
  1. OJJAARA [Suspect]
     Active Substance: MOMELOTINIB DIHYDROCHLORIDE MONOHYDRATE
     Indication: Myelofibrosis
  2. LIPITOR [Suspect]
     Active Substance: ATORVASTATIN CALCIUM
  3. ALLOPURINOL [Suspect]
     Active Substance: ALLOPURINOL
  4. AMLODIPINE BESYLATE [Suspect]
     Active Substance: AMLODIPINE BESYLATE
  5. LOVENOX [Suspect]
     Active Substance: ENOXAPARIN SODIUM

REACTIONS (5)
  - Drug ineffective [None]
  - Platelet count decreased [None]
  - Hypersomnia [None]
  - Decreased activity [None]
  - Emotional disorder [None]

NARRATIVE: CASE EVENT DATE: 20240710
